FAERS Safety Report 20343251 (Version 3)
Quarter: 2022Q1

REPORT INFORMATION
  Report Type: Report from Study
  Country: CA (occurrence: CA)
  Receive Date: 20220117
  Receipt Date: 20220323
  Transmission Date: 20220423
  Serious: Yes (Other)
  Sender: FDA-Public Use
  Company Number: CA-JNJFOC-20220120998

PATIENT
  Sex: Male

DRUGS (1)
  1. IMBRUVICA [Suspect]
     Active Substance: IBRUTINIB
     Indication: Chronic lymphocytic leukaemia
     Route: 048

REACTIONS (6)
  - Dialysis [Unknown]
  - Vascular pseudoaneurysm [Not Recovered/Not Resolved]
  - General physical condition abnormal [Unknown]
  - Off label use [Unknown]
  - Incorrect dose administered [Unknown]
  - Fistula [Unknown]
